FAERS Safety Report 11749534 (Version 1)
Quarter: 2015Q4

REPORT INFORMATION
  Report Type: Spontaneous
  Country: US (occurrence: None)
  Receive Date: 20151117
  Receipt Date: 20151117
  Transmission Date: 20160304
  Serious: Yes (Life-Threatening, Disabling, Other)
  Sender: FDA-Public Use
  Company Number: None

PATIENT
  Age: 53 Year
  Sex: Female
  Weight: 53.52 kg

DRUGS (2)
  1. CENTRUM SILVER [Concomitant]
     Active Substance: MINERALS\VITAMINS
  2. CYMBALTA [Suspect]
     Active Substance: DULOXETINE HYDROCHLORIDE
     Indication: ANTIDEPRESSANT THERAPY
     Route: 048
     Dates: start: 20151030, end: 20151113

REACTIONS (13)
  - Skin exfoliation [None]
  - Pain [None]
  - Bruxism [None]
  - Headache [None]
  - Arthralgia [None]
  - Blood urine present [None]
  - Tongue discolouration [None]
  - Blister [None]
  - Contusion [None]
  - Lip swelling [None]
  - Tooth fracture [None]
  - Vision blurred [None]
  - Back pain [None]

NARRATIVE: CASE EVENT DATE: 20151111
